FAERS Safety Report 19227292 (Version 3)
Quarter: 2021Q2

REPORT INFORMATION
  Report Type: Spontaneous
  Country: PL (occurrence: PL)
  Receive Date: 20210507
  Receipt Date: 20210517
  Transmission Date: 20210717
  Serious: Yes (Hospitalization)
  Sender: FDA-Public Use
  Company Number: PL-AUROBINDO-AUR-APL-2021-017462

PATIENT
  Age: 38 Year
  Sex: Female

DRUGS (1)
  1. TOPIRAMATE. [Suspect]
     Active Substance: TOPIRAMATE
     Indication: HEADACHE
     Dosage: 25 MILLIGRAM, ONCE A DAY FOR 7 DAYS
     Route: 048

REACTIONS (5)
  - Pseudomyopia [Recovered/Resolved]
  - Intraocular pressure increased [Unknown]
  - Angle closure glaucoma [Recovered/Resolved]
  - Myopia [Recovering/Resolving]
  - Medication error [Unknown]
